FAERS Safety Report 25785879 (Version 1)
Quarter: 2025Q3

REPORT INFORMATION
  Report Type: Report from Study
  Country: EC (occurrence: EC)
  Receive Date: 20250910
  Receipt Date: 20250910
  Transmission Date: 20251021
  Serious: Yes (Hospitalization, Other)
  Sender: ROCHE
  Company Number: EC-ROCHE-10000381535

PATIENT
  Age: 42 Year
  Sex: Male

DRUGS (1)
  1. COTELLIC [Suspect]
     Active Substance: COBIMETINIB FUMARATE
     Indication: Product used for unknown indication
     Route: 065
     Dates: start: 20220401, end: 20250807

REACTIONS (8)
  - Peripheral swelling [Unknown]
  - Erythema [Unknown]
  - Inflammation [Unknown]
  - Hypertension [Unknown]
  - Pyrexia [Unknown]
  - Infection [Unknown]
  - Pain in extremity [Unknown]
  - Chills [Unknown]

NARRATIVE: CASE EVENT DATE: 20250828
